FAERS Safety Report 13649638 (Version 1)
Quarter: 2017Q2

REPORT INFORMATION
  Report Type: Spontaneous
  Country: US (occurrence: US)
  Receive Date: 20170614
  Receipt Date: 20170614
  Transmission Date: 20170830
  Serious: Yes (Hospitalization, Other)
  Sender: FDA-Public Use
  Company Number: US-ROCHE-1946144

PATIENT
  Age: 81 Year
  Sex: Female

DRUGS (4)
  1. LISINOPRIL. [Concomitant]
     Active Substance: LISINOPRIL
  2. ATENOLOL. [Concomitant]
     Active Substance: ATENOLOL
  3. METFORMIN [Concomitant]
     Active Substance: METFORMIN HYDROCHLORIDE
     Route: 065
  4. LUCENTIS [Suspect]
     Active Substance: RANIBIZUMAB
     Indication: RETINAL VEIN OCCLUSION
     Dosage: UNKNOWN
     Route: 050
     Dates: start: 20170424

REACTIONS (5)
  - Seizure [Unknown]
  - Brain oedema [Unknown]
  - Headache [Unknown]
  - Cerebrovascular accident [Unknown]
  - Neurologic neglect syndrome [Unknown]

NARRATIVE: CASE EVENT DATE: 20170603
